FAERS Safety Report 5864037-8 (Version None)
Quarter: 2008Q3

REPORT INFORMATION
  Report Type: 
  Country: None (occurrence: None)
  Receive Date: 20080829
  Receipt Date: 20080820
  Transmission Date: 20090109
  Serious: No
  Sender: FDA-Public Use
  Company Number: US-BAYER-200831677NA

PATIENT
  Age: 58 Year
  Sex: Male

DRUGS (8)
  1. LEVITRA [Suspect]
     Indication: ERECTILE DYSFUNCTION
     Dosage: TOTAL DAILY DOSE: 10 MG  UNIT DOSE: 10 MG
     Route: 048
     Dates: start: 20070401, end: 20080601
  2. ASPIRIN [Concomitant]
     Dosage: TOTAL DAILY DOSE: 325 MG  UNIT DOSE: 325 MG
     Route: 048
  3. METOPROLOL TARTRATE [Concomitant]
     Dosage: TOTAL DAILY DOSE: 100 MG
     Route: 048
  4. LISINOPRIL [Concomitant]
  5. OMEPRAZOLE [Concomitant]
     Dosage: TOTAL DAILY DOSE: 20 MG
  6. CENTRUM SILVER [Concomitant]
     Route: 048
  7. COENZYME Q10 [Concomitant]
  8. FISH OIL [Concomitant]

REACTIONS (2)
  - CHEST PAIN [None]
  - NAUSEA [None]
